FAERS Safety Report 24696100 (Version 2)
Quarter: 2024Q4

REPORT INFORMATION
  Report Type: Spontaneous
  Country: US (occurrence: US)
  Receive Date: 20241204
  Receipt Date: 20241217
  Transmission Date: 20250114
  Serious: No
  Sender: ACCORD
  Company Number: US-Accord-458001

PATIENT
  Sex: Male

DRUGS (1)
  1. CLONAZEPAM [Suspect]
     Active Substance: CLONAZEPAM
     Indication: Anxiety
     Dosage: 2MG ONE/DAY

REACTIONS (2)
  - Product physical issue [Unknown]
  - Drug ineffective [Unknown]
